FAERS Safety Report 22541254 (Version 2)
Quarter: 2024Q1

REPORT INFORMATION
  Report Type: Report from Study
  Country: US (occurrence: US)
  Receive Date: 20230609
  Receipt Date: 20240205
  Transmission Date: 20240410
  Serious: Yes (Other)
  Sender: FDA-Public Use
  Company Number: US-SUN PHARMACEUTICAL INDUSTRIES LTD-2023R1-393718

PATIENT
  Age: 41 Year
  Sex: Female

DRUGS (2)
  1. PREDNISONE [Suspect]
     Active Substance: PREDNISONE
     Indication: Presumed ocular histoplasmosis syndrome
     Dosage: 40 MILLIGRAM, DAILY
     Route: 048
  2. MYCOPHENOLIC ACID [Suspect]
     Active Substance: MYCOPHENOLIC ACID
     Indication: Presumed ocular histoplasmosis syndrome
     Dosage: 250 MILLIGRAM, BID
     Route: 048

REACTIONS (1)
  - Therapeutic product effect incomplete [Unknown]
